FAERS Safety Report 5160414-1 (Version None)
Quarter: 2006Q4

REPORT INFORMATION
  Report Type: 
  Country: None (occurrence: None)
  Receive Date: 20061121
  Receipt Date: 20061109
  Transmission Date: 20070319
  Serious: Yes (Hospitalization, Other)
  Sender: FDA-Public Use
  Company Number: 2006051115

PATIENT
  Age: 53 Year
  Sex: Female

DRUGS (28)
  1. NEURONTIN [Suspect]
     Indication: FIBROMYALGIA
     Dosage: 2400 MG (600 MG,4 IN 1 D), ORAL
     Route: 048
     Dates: start: 19990809, end: 20021101
  2. NEURONTIN [Suspect]
     Indication: PAIN
     Dosage: 2400 MG (600 MG,4 IN 1 D), ORAL
     Route: 048
     Dates: start: 19990809, end: 20021101
  3. EFFEXOR [Concomitant]
  4. CELEXA [Concomitant]
  5. CHLORZOXAZONE/IBUPROFEN [Concomitant]
  6. WELLBUTRIN [Concomitant]
  7. REMERON [Concomitant]
  8. HYDROXYZINE PAMOATE [Concomitant]
  9. CELEBREX [Concomitant]
  10. KLONOPIN [Concomitant]
  11. LUVOX [Concomitant]
  12. PROZAC [Concomitant]
  13. SEROQUEL [Concomitant]
  14. ADDERALL 10 [Concomitant]
  15. HYDROCODONE BITARTRATE + ACETAMINOPHEN [Concomitant]
  16. PROPOXYPHENE NAPSYLATE W/ACETAMINOPHENE (DEXTROPROPOXYPHENE NAPSILATE, [Concomitant]
  17. PERCOCET [Concomitant]
  18. OXYCONTIN [Concomitant]
  19. CYCLOBENZAPRINE HCL [Concomitant]
  20. AMPHETAMINE (AMFETAMINE) [Concomitant]
  21. CARISOPRODOL [Concomitant]
  22. ORPHENADRINE CITRATE [Concomitant]
  23. MOBIC [Concomitant]
  24. EVISTA [Concomitant]
  25. ZANAFLEX [Concomitant]
  26. ZOLOFT [Concomitant]
  27. ZYPREXA [Concomitant]
  28. SKELAXIN [Concomitant]

REACTIONS (25)
  - ACCIDENT [None]
  - AGGRESSION [None]
  - AGORAPHOBIA [None]
  - ANXIETY [None]
  - ARTHRALGIA [None]
  - ARTHROPATHY [None]
  - BACK PAIN [None]
  - BIPOLAR DISORDER [None]
  - CONTUSION [None]
  - DELUSION [None]
  - DRUG INEFFECTIVE [None]
  - EMOTIONAL DISORDER [None]
  - FALL [None]
  - HEAD INJURY [None]
  - IMPAIRED WORK ABILITY [None]
  - MAJOR DEPRESSION [None]
  - MOOD SWINGS [None]
  - OVERDOSE [None]
  - PANIC DISORDER [None]
  - PARENT-CHILD PROBLEM [None]
  - PSYCHOTIC DISORDER [None]
  - ROAD TRAFFIC ACCIDENT [None]
  - SCHIZOPHRENIA, PARANOID TYPE [None]
  - SUICIDE ATTEMPT [None]
  - UNEVALUABLE EVENT [None]
